FAERS Safety Report 23566306 (Version 1)
Quarter: 2024Q1

REPORT INFORMATION
  Report Type: Spontaneous
  Country: AU (occurrence: None)
  Receive Date: 20240226
  Receipt Date: 20240226
  Transmission Date: 20240410
  Serious: Yes (Other)
  Sender: FDA-Public Use
  Company Number: 2024A047103

PATIENT
  Sex: Male

DRUGS (11)
  1. QUETIAPINE FUMARATE [Suspect]
     Active Substance: QUETIAPINE FUMARATE
     Indication: Bipolar II disorder
     Dosage: LOW DOSE
     Route: 048
  2. QUETIAPINE FUMARATE [Suspect]
     Active Substance: QUETIAPINE FUMARATE
     Indication: Bipolar II disorder
     Dosage: INCREASED TO 250 MG ONCE A DAY
     Route: 048
  3. SACCHAROMYCES CEREVISIAE [Suspect]
     Active Substance: SACCHAROMYCES CEREVISIAE
     Indication: Bipolar II disorder
     Dates: start: 201907
  4. LACTOBACILLUS ACIDOPHILUS [Suspect]
     Active Substance: LACTOBACILLUS ACIDOPHILUS
     Indication: Bipolar II disorder
     Dates: start: 201907
  5. LACTOBACILLUS RHAMNOSUS [Suspect]
     Active Substance: LACTOBACILLUS RHAMNOSUS
     Indication: Bipolar II disorder
     Dates: start: 201907
  6. VALPROATE SODIUM [Suspect]
     Active Substance: VALPROATE SODIUM
     Indication: Bipolar II disorder
     Dosage: INITIAL DOSE NOT STATED
  7. VALPROATE SODIUM [Suspect]
     Active Substance: VALPROATE SODIUM
     Indication: Bipolar II disorder
     Dosage: INCREASED TO 800 MG ONCE A DAY
  8. VALPROATE SODIUM [Suspect]
     Active Substance: VALPROATE SODIUM
     Indication: Bipolar II disorder
     Dosage: REDUCED TO 200MG
  9. LAMOTRIGINE [Concomitant]
     Active Substance: LAMOTRIGINE
     Indication: Bipolar II disorder
     Dosage: INITIAL DOSE NOT STATED
  10. LAMOTRIGINE [Concomitant]
     Active Substance: LAMOTRIGINE
     Indication: Bipolar II disorder
     Dosage: NOCTE [TITRATED TO 200MG OVER EIGHT WEEKS]
  11. LAMOTRIGINE [Concomitant]
     Active Substance: LAMOTRIGINE
     Indication: Bipolar II disorder
     Dosage: INCREASED TO 400 MG ONCE A DAY

REACTIONS (9)
  - Drug dependence [Recovered/Resolved]
  - Depressed level of consciousness [Recovering/Resolving]
  - Food craving [Recovering/Resolving]
  - Weight increased [Recovered/Resolved]
  - Irritability [Recovering/Resolving]
  - Speech disorder [Recovering/Resolving]
  - Sleep deficit [Recovering/Resolving]
  - Hypomania [Recovering/Resolving]
  - Intentional product misuse [Unknown]
